FAERS Safety Report 19187572 (Version 1)
Quarter: 2021Q2

REPORT INFORMATION
  Report Type: Spontaneous
  Country: US (occurrence: US)
  Receive Date: 20210428
  Receipt Date: 20210428
  Transmission Date: 20210717
  Serious: No
  Sender: FDA-Public Use
  Company Number: US-SA-2021SA137593

PATIENT
  Age: 51 Year
  Sex: Male

DRUGS (11)
  1. CRESTOR [Concomitant]
     Active Substance: ROSUVASTATIN CALCIUM
  2. LEXAPRO [Concomitant]
     Active Substance: ESCITALOPRAM OXALATE
     Dosage: UNK MG
  3. ZETIA [Concomitant]
     Active Substance: EZETIMIBE
  4. DULERA [Concomitant]
     Active Substance: FORMOTEROL FUMARATE DIHYDRATE\MOMETASONE FUROATE
     Dosage: 100?5 MCG HFA AER AD
  5. VITAMIN B12 [Concomitant]
     Active Substance: CYANOCOBALAMIN
  6. VITAMIN D3 [Concomitant]
     Active Substance: CHOLECALCIFEROL
     Dosage: 100000/G POWDER
  7. TACROLIMUS. [Concomitant]
     Active Substance: TACROLIMUS
  8. SPIRIVA [Concomitant]
     Active Substance: TIOTROPIUM BROMIDE MONOHYDRATE
  9. DUPIXENT [Suspect]
     Active Substance: DUPILUMAB
     Dosage: 300 MG, QOW
     Route: 058
     Dates: start: 20210315
  10. TRIAMCINOLONE ACETONIDE. [Concomitant]
     Active Substance: TRIAMCINOLONE ACETONIDE
  11. MULTIVITAMINS [VITAMINS NOS] [Concomitant]
     Active Substance: VITAMINS

REACTIONS (1)
  - Product use in unapproved indication [Unknown]

NARRATIVE: CASE EVENT DATE: 20210315
